FAERS Safety Report 15736055 (Version 3)
Quarter: 2019Q1

REPORT INFORMATION
  Report Type: Report from Study
  Country: IT (occurrence: IT)
  Receive Date: 20181218
  Receipt Date: 20190201
  Transmission Date: 20190417
  Serious: Yes (Hospitalization)
  Sender: FDA-Public Use
  Company Number: IT-TEVA-2018-IT-987879

PATIENT
  Age: 14 Year
  Sex: Female

DRUGS (3)
  1. LORAZEPAM. [Suspect]
     Active Substance: LORAZEPAM
     Indication: SUICIDE ATTEMPT
     Route: 048
     Dates: start: 20181025, end: 20181025
  2. TRAZODONE HYDROCHLORIDE. [Suspect]
     Active Substance: TRAZODONE HYDROCHLORIDE
     Indication: SUICIDE ATTEMPT
     Route: 048
     Dates: start: 20181025, end: 20181025
  3. ALPRAZOLAM. [Suspect]
     Active Substance: ALPRAZOLAM
     Indication: SUICIDE ATTEMPT
     Route: 048
     Dates: start: 20181025, end: 20181025

REACTIONS (4)
  - Drug abuse [Recovering/Resolving]
  - Gait disturbance [Recovering/Resolving]
  - Suicide attempt [Recovering/Resolving]
  - Slow speech [Recovering/Resolving]

NARRATIVE: CASE EVENT DATE: 20181026
